FAERS Safety Report 16340625 (Version 2)
Quarter: 2019Q2

REPORT INFORMATION
  Report Type: Spontaneous
  Country: US (occurrence: US)
  Receive Date: 20190522
  Receipt Date: 20190528
  Transmission Date: 20190711
  Serious: No
  Sender: FDA-Public Use
  Company Number: US-GLAXOSMITHKLINE-US2019086933

PATIENT
  Age: 77 Year
  Sex: Female

DRUGS (1)
  1. FLONASE SENSIMIST ALLERGY RELIEF [Suspect]
     Active Substance: FLUTICASONE FUROATE
     Indication: MULTIPLE ALLERGIES
     Dosage: UNK, QD (2 SPRAYS PER NOSTRIL)
     Dates: start: 201808

REACTIONS (2)
  - Drug ineffective [Unknown]
  - Sneezing [Unknown]

NARRATIVE: CASE EVENT DATE: 201808
